FAERS Safety Report 9885861 (Version 4)
Quarter: 2014Q1

REPORT INFORMATION
  Report Type: Spontaneous
  Country: HU (occurrence: HU)
  Receive Date: 20140210
  Receipt Date: 20140331
  Transmission Date: 20141002
  Serious: Yes (Other)
  Sender: FDA-Public Use
  Company Number: HU-PFIZER INC-2014034304

PATIENT
  Age: 64 Year
  Sex: Male

DRUGS (1)
  1. SUTENT [Suspect]
     Indication: CLEAR CELL RENAL CELL CARCINOMA
     Dosage: 50 MG, 1X/DAY (2 WEEKS TAKING, 1 WEEK BREAK)
     Route: 048
     Dates: start: 20131217

REACTIONS (5)
  - Choking [Not Recovered/Not Resolved]
  - Dysphonia [Not Recovered/Not Resolved]
  - Dysgeusia [Not Recovered/Not Resolved]
  - Dysphagia [Recovered/Resolved]
  - Blood thyroid stimulating hormone increased [Unknown]
